FAERS Safety Report 7962614-1 (Version None)
Quarter: 2011Q4

REPORT INFORMATION
  Report Type: 
  Country: None (occurrence: None)
  Receive Date: 20111207
  Receipt Date: 20111125
  Transmission Date: 20120403
  Serious: Yes (Hospitalization, Other)
  Sender: FDA-Public Use
  Company Number: FR-JNJFOC-20111004312

PATIENT
  Age: 38 Year
  Sex: Female
  Weight: 65 kg

DRUGS (11)
  1. MORPHINE SULFATE [Concomitant]
     Indication: PAIN
     Dosage: 60 - 140 MG
     Dates: end: 20110701
  2. REMICADE [Suspect]
     Route: 042
     Dates: start: 20110526
  3. REMICADE [Suspect]
     Route: 042
     Dates: start: 20110414
  4. METHOTREXATE SODIUM [Suspect]
     Indication: SPONDYLITIS
     Dates: start: 20070101, end: 20110901
  5. REMICADE [Suspect]
     Route: 042
     Dates: start: 20110414
  6. REMICADE [Suspect]
     Route: 042
     Dates: start: 20110814, end: 20110814
  7. PREDNISOLONE [Concomitant]
     Indication: SPONDYLITIS
     Dosage: 20-60 MG
     Dates: start: 20070101
  8. REMICADE [Suspect]
     Route: 042
     Dates: start: 20110526
  9. REMICADE [Suspect]
     Route: 042
     Dates: start: 20110814, end: 20110814
  10. REMICADE [Suspect]
     Indication: CROHN'S DISEASE
     Route: 042
     Dates: start: 20010101, end: 20070101
  11. REMICADE [Suspect]
     Indication: ANKYLOSING SPONDYLITIS
     Route: 042
     Dates: start: 20010101, end: 20070101

REACTIONS (2)
  - PERICARDITIS [None]
  - PLEURAL DISORDER [None]
